FAERS Safety Report 9143354 (Version 1)
Quarter: 2013Q1

REPORT INFORMATION
  Report Type: Report from Study
  Country: US (occurrence: US)
  Receive Date: 20130306
  Receipt Date: 20130306
  Transmission Date: 20140127
  Serious: Yes (Other)
  Sender: FDA-Public Use
  Company Number: US-ELI_LILLY_AND_COMPANY-US201302008905

PATIENT
  Age: 28 Year
  Sex: Female
  Weight: 102.4 kg

DRUGS (22)
  1. OLANZAPINE LONG-ACTING IM [Suspect]
     Indication: SCHIZOPHRENIA
     Dosage: 405 MG, UNK
     Route: 030
     Dates: start: 20110811
  2. OLANZAPINE LONG-ACTING IM [Suspect]
     Dosage: 405 MG, UNK
     Route: 030
     Dates: start: 20110908
  3. OLANZAPINE LONG-ACTING IM [Suspect]
     Dosage: 405 MG, UNK
     Route: 030
     Dates: start: 20111007
  4. OLANZAPINE LONG-ACTING IM [Suspect]
     Dosage: 300 MG, UNK
     Route: 030
     Dates: start: 20111104
  5. OLANZAPINE LONG-ACTING IM [Suspect]
     Dosage: 300 MG, UNK
     Route: 030
     Dates: start: 20111202
  6. OLANZAPINE LONG-ACTING IM [Suspect]
     Dosage: 300 MG, UNK
     Route: 030
     Dates: start: 20111230
  7. OLANZAPINE LONG-ACTING IM [Suspect]
     Dosage: 300 MG, UNK
     Route: 030
     Dates: start: 20120127
  8. OLANZAPINE LONG-ACTING IM [Suspect]
     Dosage: 300 MG, UNK
     Route: 030
     Dates: start: 20120224
  9. OLANZAPINE LONG-ACTING IM [Suspect]
     Dosage: 300 MG, UNK
     Route: 030
     Dates: start: 20120323
  10. OLANZAPINE LONG-ACTING IM [Suspect]
     Dosage: 300 MG, UNK
     Route: 030
     Dates: start: 20120420
  11. OLANZAPINE LONG-ACTING IM [Suspect]
     Dosage: 300 MG, UNK
     Route: 030
     Dates: start: 20120518
  12. OLANZAPINE LONG-ACTING IM [Suspect]
     Dosage: 300 MG, UNK
     Route: 030
     Dates: start: 20120615
  13. OLANZAPINE LONG-ACTING IM [Suspect]
     Dosage: 300 MG, UNK
     Route: 030
     Dates: start: 20120712
  14. OLANZAPINE LONG-ACTING IM [Suspect]
     Dosage: 300 MG, UNK
     Route: 030
     Dates: start: 20120809
  15. OLANZAPINE LONG-ACTING IM [Suspect]
     Dosage: 300 MG, UNK
     Route: 030
     Dates: start: 20120907
  16. OLANZAPINE LONG-ACTING IM [Suspect]
     Dosage: 300 MG, UNK
     Route: 030
     Dates: start: 20121005
  17. OLANZAPINE LONG-ACTING IM [Suspect]
     Dosage: 300 MG, UNK
     Route: 030
     Dates: start: 20121102
  18. OLANZAPINE LONG-ACTING IM [Suspect]
     Dosage: 300 MG, UNK
     Route: 030
     Dates: start: 20121130
  19. OLANZAPINE LONG-ACTING IM [Suspect]
     Dosage: 300 MG, UNK
     Route: 030
     Dates: start: 20121228
  20. OLANZAPINE LONG-ACTING IM [Suspect]
     Dosage: 300 MG, UNK
     Route: 030
     Dates: start: 20130125
  21. OLANZAPINE LONG-ACTING IM [Suspect]
     Dosage: 300 MG, UNK
     Route: 030
     Dates: start: 20130222
  22. PRISTIQ [Concomitant]
     Dosage: 100 MG, UNK

REACTIONS (9)
  - Confusional state [Recovered/Resolved]
  - Disorientation [Recovered/Resolved]
  - Asthenia [Recovered/Resolved]
  - Dizziness [Recovered/Resolved]
  - Dizziness [Recovered/Resolved]
  - Feeling abnormal [Recovered/Resolved]
  - Back pain [Recovered/Resolved]
  - Nausea [Recovered/Resolved]
  - Feeling abnormal [Recovered/Resolved]
